FAERS Safety Report 24891700 (Version 1)
Quarter: 2025Q1

REPORT INFORMATION
  Report Type: Spontaneous
  Country: TR (occurrence: TR)
  Receive Date: 20250127
  Receipt Date: 20250127
  Transmission Date: 20250409
  Serious: No
  Sender: JAZZ
  Company Number: TR-JAZZ PHARMACEUTICALS-2024-TR-021138

PATIENT
  Age: 17 Year
  Sex: Male

DRUGS (4)
  1. DEFIBROTIDE SODIUM [Suspect]
     Active Substance: DEFIBROTIDE SODIUM
     Indication: Thrombotic microangiopathy
  2. DEFIBROTIDE SODIUM [Suspect]
     Active Substance: DEFIBROTIDE SODIUM
     Indication: Microangiopathy
  3. METHYLPREDNISOLONE [Suspect]
     Active Substance: METHYLPREDNISOLONE
     Indication: Microangiopathy
  4. RITUXIMAB [Suspect]
     Active Substance: RITUXIMAB
     Indication: Microangiopathy

REACTIONS (2)
  - Off label use [Unknown]
  - Drug effective for unapproved indication [Unknown]
